FAERS Safety Report 24740210 (Version 1)
Quarter: 2024Q4

REPORT INFORMATION
  Report Type: Report from Study
  Country: US (occurrence: US)
  Receive Date: 20241216
  Receipt Date: 20241216
  Transmission Date: 20250115
  Serious: Yes (Other)
  Sender: ABBVIE
  Company Number: US-ABBVIE-6041555

PATIENT
  Age: 61 Year
  Sex: Male

DRUGS (1)
  1. SKYRIZI [Suspect]
     Active Substance: RISANKIZUMAB-RZAA
     Indication: Psoriasis
     Route: 058
     Dates: start: 20240809

REACTIONS (5)
  - Nephrolithiasis [Recovering/Resolving]
  - Suspected COVID-19 [Unknown]
  - Herpes zoster [Not Recovered/Not Resolved]
  - Throat tightness [Not Recovered/Not Resolved]
  - Renal procedural complication [Recovering/Resolving]

NARRATIVE: CASE EVENT DATE: 20240101
